FAERS Safety Report 23351396 (Version 1)
Quarter: 2023Q4

REPORT INFORMATION
  Report Type: Spontaneous
  Country: US (occurrence: US)
  Receive Date: 20231229
  Receipt Date: 20231229
  Transmission Date: 20240110
  Serious: No
  Sender: FDA-Public Use
  Company Number: US-009507513-2312USA001003

PATIENT
  Age: 1 Year
  Sex: Female

DRUGS (2)
  1. VARIVAX [Suspect]
     Active Substance: VARICELLA-ZOSTER VIRUS STRAIN OKA/MERCK LIVE ANTIGEN
     Indication: Prophylaxis
     Dates: start: 20231120
  2. STERILE DILUENT (WATER) [Suspect]
     Active Substance: WATER
     Dosage: UNK
     Dates: start: 20231120

REACTIONS (5)
  - Rash maculo-papular [Unknown]
  - Rash vesicular [Unknown]
  - Cough [Unknown]
  - Ill-defined disorder [Unknown]
  - Herpes simplex test positive [Unknown]

NARRATIVE: CASE EVENT DATE: 20231124
